FAERS Safety Report 7853806-0 (Version None)
Quarter: 2011Q4

REPORT INFORMATION
  Report Type: 
  Country: None (occurrence: None)
  Receive Date: 20111026
  Receipt Date: 20111020
  Transmission Date: 20120403
  Serious: Yes (Death)
  Sender: FDA-Public Use
  Company Number: AU-PFIZER INC-2011252598

PATIENT
  Age: 59 Year

DRUGS (1)
  1. TORISEL [Suspect]

REACTIONS (1)
  - DEATH [None]
